FAERS Safety Report 7459663-9 (Version None)
Quarter: 2011Q2

REPORT INFORMATION
  Report Type: 
  Country: None (occurrence: None)
  Receive Date: 20110505
  Receipt Date: 20110428
  Transmission Date: 20111010
  Serious: Yes (Hospitalization, Other)
  Sender: FDA-Public Use
  Company Number: PHHY2010US69433

PATIENT
  Sex: Male

DRUGS (2)
  1. GLEEVEC [Suspect]
     Indication: CHRONIC MYELOID LEUKAEMIA
     Dosage: 200 MG, QD
     Route: 048
     Dates: start: 20110412
  2. GLEEVEC [Suspect]
     Dosage: 400 MG, DAILY

REACTIONS (8)
  - WEIGHT DECREASED [None]
  - HEAD INJURY [None]
  - MALAISE [None]
  - ASTHENIA [None]
  - MEMORY IMPAIRMENT [None]
  - FALL [None]
  - HAEMORRHAGE [None]
  - TRAUMATIC BRAIN INJURY [None]
